FAERS Safety Report 9737465 (Version 1)
Quarter: 2013Q4

REPORT INFORMATION
  Report Type: Spontaneous
  Country: FR (occurrence: FR)
  Receive Date: 20131206
  Receipt Date: 20131206
  Transmission Date: 20140711
  Serious: Yes (Life-Threatening)
  Sender: FDA-Public Use
  Company Number: FR-ASTRAZENECA-2013SE88669

PATIENT
  Age: 23768 Day
  Sex: Female

DRUGS (3)
  1. XEROQUEL [Suspect]
     Route: 048
     Dates: start: 20130925, end: 20130929
  2. SERESTA [Suspect]
     Route: 048
     Dates: start: 20130925, end: 20130929
  3. RISPERDAL [Concomitant]
     Dates: end: 20130925

REACTIONS (9)
  - Coma [Unknown]
  - Hyperthermia [Recovered/Resolved]
  - Hypernatraemia [Recovered/Resolved]
  - Muscle spasticity [Recovered/Resolved]
  - Pneumonia aspiration [Unknown]
  - Metabolic acidosis [Unknown]
  - Renal failure acute [Unknown]
  - Dehydration [Unknown]
  - Neuroleptic malignant syndrome [Unknown]
